FAERS Safety Report 12936574 (Version 1)
Quarter: 2016Q4

REPORT INFORMATION
  Report Type: Spontaneous
  Country: US (occurrence: US)
  Receive Date: 20161114
  Receipt Date: 20161114
  Transmission Date: 20170207
  Serious: Yes (Death, Hospitalization)
  Sender: FDA-Public Use
  Company Number: US-B.I. PHARMACEUTICALS,INC./RIDGEFIELD-2016-BI-076788

PATIENT
  Age: 71 Year
  Sex: Female

DRUGS (1)
  1. AGGRENOX [Suspect]
     Active Substance: ASPIRIN\DIPYRIDAMOLE
     Indication: CEREBROVASCULAR ACCIDENT
     Dosage: 1 CAPSULE TWICE DAILY;  FORM STRENGTH: 25 MG / 200 MG; FORMULATION: CAPSULE? ADMINISTRATION CORRECT?
     Route: 048
     Dates: start: 20150330

REACTIONS (6)
  - Myocardial infarction [Unknown]
  - Pneumonia [Unknown]
  - Death [Fatal]
  - Decreased activity [Unknown]
  - Abdominal pain upper [Unknown]
  - Pancreatitis [Unknown]

NARRATIVE: CASE EVENT DATE: 20161104
